FAERS Safety Report 10638651 (Version 1)
Quarter: 2014Q4

REPORT INFORMATION
  Report Type: Spontaneous
  Country: US (occurrence: US)
  Receive Date: 20141208
  Receipt Date: 20141208
  Transmission Date: 20150529
  Serious: Yes (Life-Threatening)
  Sender: FDA-Public Use
  Company Number: US-SA-2014SA143566

PATIENT
  Age: 62 Year
  Sex: Female

DRUGS (3)
  1. IRON [Concomitant]
     Active Substance: IRON
     Route: 048
     Dates: start: 20140915
  2. FERRLECIT [Suspect]
     Active Substance: SODIUM FERRIC GLUCONATE COMPLEX
     Indication: ANAEMIA
     Dosage: 125 MG IN 250 ML NS (IV BAG USING 500 ML NS, THEN WITHDREW 250 ML FOR TOTAL VOL 250 ML NS, INFUSION
     Dates: start: 20141016
  3. FERRLECIT [Suspect]
     Active Substance: SODIUM FERRIC GLUCONATE COMPLEX
     Indication: BLOOD IRON DECREASED
     Dosage: 125 MG IN 250 ML NS (IV BAG USING 500 ML NS, THEN WITHDREW 250 ML FOR TOTAL VOL 250 ML NS, INFUSION
     Dates: start: 20141016

REACTIONS (4)
  - Swollen tongue [Unknown]
  - Dyspnoea [Unknown]
  - Arthralgia [Unknown]
  - Blood pressure decreased [Unknown]

NARRATIVE: CASE EVENT DATE: 20141016
